FAERS Safety Report 7512341-X (Version None)
Quarter: 2011Q2

REPORT INFORMATION
  Report Type: 
  Country: None (occurrence: None)
  Receive Date: 20110531
  Receipt Date: 20110523
  Transmission Date: 20111010
  Serious: Yes (Hospitalization)
  Sender: FDA-Public Use
  Company Number: FR-PFIZER INC-FRWYE243430NOV04

PATIENT
  Age: 52 Year
  Sex: Male

DRUGS (9)
  1. OMEPRAZOLE [Concomitant]
     Route: 065
  2. ACETYLSALICYLIC ACID/PARACETAMOL [Concomitant]
     Route: 065
  3. PHYTOMENADIONE [Concomitant]
     Route: 065
  4. ZYVOX [Suspect]
     Indication: BRONCHOPNEUMONIA
     Dosage: 600 MG, 2X/DAY
     Route: 042
     Dates: start: 20040930, end: 20041014
  5. SPASFON [Concomitant]
     Route: 065
  6. VITAMIN B1 AND B6 [Concomitant]
     Dosage: UNKNOWN
     Route: 065
  7. URSOLVAN-200 [Concomitant]
     Route: 065
  8. PIPERACILLIN AND TAZOBACTAM [Suspect]
     Indication: BRONCHOPNEUMONIA
     Dosage: 4 G, 2X/DAY
     Route: 042
     Dates: start: 20040930, end: 20041014
  9. PARACETAMOL [Concomitant]
     Dosage: UNKNOWN

REACTIONS (2)
  - ANURIA [None]
  - RENAL FAILURE ACUTE [None]
